FAERS Safety Report 21144346 (Version 3)
Quarter: 2022Q4

REPORT INFORMATION
  Report Type: Spontaneous
  Country: US (occurrence: US)
  Receive Date: 20220728
  Receipt Date: 20221215
  Transmission Date: 20230112
  Serious: No
  Sender: FDA-Public Use
  Company Number: US-PFIZER INC-202101274819

PATIENT
  Age: 78 Year
  Sex: Female

DRUGS (1)
  1. ARTHROTEC [Suspect]
     Active Substance: DICLOFENAC SODIUM\MISOPROSTOL
     Indication: Osteoarthritis
     Dosage: 75 MG, 3X/DAY
     Route: 048

REACTIONS (2)
  - Off label use [Unknown]
  - Movement disorder [Unknown]
